FAERS Safety Report 24768342 (Version 1)
Quarter: 2024Q4

REPORT INFORMATION
  Report Type: Report from Study
  Country: DE (occurrence: GB)
  Receive Date: 20241223
  Receipt Date: 20241223
  Transmission Date: 20250115
  Serious: Yes (Other)
  Sender: ABBVIE
  Company Number: DE-ABBVIE-6050760

PATIENT
  Age: 78 Year
  Sex: Male

DRUGS (2)
  1. DEVICE [Suspect]
     Active Substance: DEVICE
     Indication: Parkinson^s disease
     Dosage: 3 ML/H
     Route: 050
  2. DEVICE [Suspect]
     Active Substance: DEVICE
     Dosage: 3.2 ML/HOUR AND 8 ML MORNING DOSE
     Route: 050

REACTIONS (8)
  - Deafness [Unknown]
  - Dyskinesia [Unknown]
  - Reduced facial expression [Unknown]
  - Bradykinesia [Unknown]
  - Gait disturbance [Unknown]
  - Device issue [Unknown]
  - Aphasia [Unknown]
  - Freezing phenomenon [Unknown]
